FAERS Safety Report 8031451-4 (Version None)
Quarter: 2012Q1

REPORT INFORMATION
  Report Type: 
  Country: None (occurrence: None)
  Receive Date: 20120109
  Receipt Date: 20120103
  Transmission Date: 20120608
  Serious: Yes (Hospitalization)
  Sender: FDA-Public Use
  Company Number: US-BAYER-2011-035909

PATIENT
  Age: 41 Year
  Sex: Female
  Weight: 119.27 kg

DRUGS (12)
  1. YAZ [Suspect]
     Indication: OVARIAN CYST
     Dosage: UNK
     Route: 048
     Dates: start: 19860101
  2. TRI-SPRINTEC [Concomitant]
     Dosage: UNK
     Dates: start: 19860101
  3. YAZ [Suspect]
     Indication: MENOPAUSE
  4. CELEXA [Concomitant]
     Indication: DEPRESSION
     Dosage: 20 MG, QD
     Route: 048
  5. YAZ [Suspect]
     Indication: CONTRACEPTION
     Dosage: UNK
     Route: 048
     Dates: start: 20080701, end: 20090301
  6. ORTHO TRI-CYCLEN [Concomitant]
     Dosage: UNK
     Dates: start: 19860101
  7. ANTI-ARRHYTHMIC MEDS [Concomitant]
     Indication: TACHYCARDIA
  8. NSAID'S [Concomitant]
     Dosage: UNK UNK, PRN
     Route: 048
     Dates: start: 19970101
  9. ADDERALL XR 10 [Concomitant]
     Indication: ATTENTION DEFICIT/HYPERACTIVITY DISORDER
     Dosage: 30 MG, QD
     Route: 048
     Dates: start: 20070101, end: 20100101
  10. ACETAMINOPHEN [Concomitant]
  11. PRILOSEC [Concomitant]
     Indication: GASTROOESOPHAGEAL REFLUX DISEASE
     Dosage: 1 DAILY
     Route: 048
     Dates: start: 20070101
  12. ACETAMINOPHEN AND HYDROCODONE BITARTRATE [Concomitant]
     Indication: PAIN
     Dosage: 5-325 MG
     Route: 048
     Dates: start: 20090222

REACTIONS (4)
  - PAIN [None]
  - DEFORMITY [None]
  - PULMONARY EMBOLISM [None]
  - INJURY [None]
